FAERS Safety Report 7621051-X (Version None)
Quarter: 2011Q3

REPORT INFORMATION
  Report Type: 
  Country: None (occurrence: None)
  Receive Date: 20110719
  Receipt Date: 20100920
  Transmission Date: 20111222
  Serious: No
  Sender: FDA-Public Use
  Company Number: US-KINGPHARMUSA00001-K201001194

PATIENT
  Sex: Female
  Weight: 56.689 kg

DRUGS (3)
  1. LEVOXYL [Suspect]
     Indication: AUTOIMMUNE THYROIDITIS
     Dosage: 88 MCG, 6X/W + 44 MCG, QW
     Route: 048
     Dates: start: 20090501, end: 20100701
  2. LEVOXYL [Suspect]
     Dosage: 88 MCG, 6X/W + 44 MCG, QOW
     Route: 048
     Dates: start: 20100701
  3. VITAMIN D [Concomitant]
     Indication: VITAMIN D DEFICIENCY
     Dosage: UNK

REACTIONS (8)
  - NAUSEA [None]
  - EXTRAOCULAR MUSCLE DISORDER [None]
  - FATIGUE [None]
  - ASTHENOPIA [None]
  - MALAISE [None]
  - DIZZINESS [None]
  - CRYING [None]
  - MUSCULAR WEAKNESS [None]
